FAERS Safety Report 14767987 (Version 1)
Quarter: 2018Q2

REPORT INFORMATION
  Report Type: Spontaneous
  Country: FR (occurrence: FR)
  Receive Date: 20180417
  Receipt Date: 20180417
  Transmission Date: 20180711
  Serious: Yes (Hospitalization)
  Sender: FDA-Public Use
  Company Number: FR-ASTRAZENECA-2018SE45796

PATIENT
  Age: 72 Year
  Sex: Female

DRUGS (10)
  1. ACEBUTOLOL [Concomitant]
     Active Substance: ACEBUTOLOL
  2. METFORMIN [Concomitant]
     Active Substance: METFORMIN HYDROCHLORIDE
  3. ATORVASTATIN [Concomitant]
     Active Substance: ATORVASTATIN
  4. MOVICOL [Concomitant]
     Active Substance: POLYETHYLENE GLYCOL 3350\POTASSIUM CHLORIDE\SODIUM BICARBONATE\SODIUM CHLORIDE
  5. PLAVIX [Concomitant]
     Active Substance: CLOPIDOGREL BISULFATE
  6. INEXIUM [Suspect]
     Active Substance: ESOMEPRAZOLE
     Route: 048
     Dates: start: 2013, end: 20180320
  7. SPIRONOLACTONE. [Concomitant]
     Active Substance: SPIRONOLACTONE
  8. XANAX [Concomitant]
     Active Substance: ALPRAZOLAM
  9. TRAMADOL. [Concomitant]
     Active Substance: TRAMADOL
  10. OROCAL (CALCIUM CARBONATE) [Concomitant]
     Active Substance: CALCIUM CARBONATE

REACTIONS (3)
  - Hypocalcaemia [Recovering/Resolving]
  - Hypomagnesaemia [Recovering/Resolving]
  - Seizure [Recovering/Resolving]

NARRATIVE: CASE EVENT DATE: 201802
